FAERS Safety Report 6357221-0 (Version None)
Quarter: 2009Q3

REPORT INFORMATION
  Report Type: 
  Country: None (occurrence: None)
  Receive Date: 20090911
  Receipt Date: 20090831
  Transmission Date: 20100115
  Serious: Yes (Death)
  Sender: FDA-Public Use
  Company Number: 20097345

PATIENT
  Age: 59 Year
  Sex: Male

DRUGS (1)
  1. LIORESAL [Suspect]
     Indication: MUSCLE SPASTICITY
     Dosage: 224.6 MCG, DAILY, INTRATHECAL
     Route: 037

REACTIONS (2)
  - DISEASE COMPLICATION [None]
  - MULTIPLE SCLEROSIS [None]
